FAERS Safety Report 10403530 (Version 1)
Quarter: 2014Q3

REPORT INFORMATION
  Report Type: Spontaneous
  Country: US (occurrence: None)
  Receive Date: 20140821
  Receipt Date: 20140821
  Transmission Date: 20150326
  Serious: Yes (Other)
  Sender: FDA-Public Use
  Company Number: None

PATIENT
  Age: 57 Year
  Sex: Female
  Weight: 68.95 kg

DRUGS (42)
  1. QUEDIAPINE [Concomitant]
  2. CALCIUM CITRATE [Concomitant]
     Active Substance: CALCIUM CITRATE
  3. IRON [Concomitant]
     Active Substance: IRON
  4. JARRO-DOPHILUS EPS ENHANCE PROBIOTIC SYSTEM [Concomitant]
  5. REFRESH EYE DROPS [Concomitant]
  6. MAGNESIUM CITRATE. [Concomitant]
     Active Substance: MAGNESIUM CITRATE
  7. CELEBREX [Concomitant]
     Active Substance: CELECOXIB
  8. LESCOL [Concomitant]
     Active Substance: FLUVASTATIN SODIUM
  9. HYDROCODON-ACETAMINOPHEN 5-325 [Concomitant]
  10. L-LYSINE [Concomitant]
     Active Substance: LYSINE
  11. VITAMIN D3 [Concomitant]
     Active Substance: CHOLECALCIFEROL
  12. ANGELIQ [Concomitant]
     Active Substance: DROSPIRENONE\ESTRADIOL
  13. I-LID [Concomitant]
  14. GINGO BILOBA [Concomitant]
  15. TWICE ENERGY MULTI-VITAMIN [Concomitant]
  16. BIOTIN [Concomitant]
     Active Substance: BIOTIN
  17. ASPIRIN. [Concomitant]
     Active Substance: ASPIRIN
  18. GABAPENTIN. [Concomitant]
     Active Substance: GABAPENTIN
  19. ACETAMINOPHEN. [Concomitant]
     Active Substance: ACETAMINOPHEN
  20. VITAMIN CODE-RAW B-12 [Concomitant]
  21. GAS-X [Concomitant]
     Active Substance: DIMETHICONE
  22. LIFE EXTENSION [Concomitant]
  23. FORMULA 3 [Concomitant]
     Active Substance: TOLNAFTATE
  24. ALPRAZOLAM. [Concomitant]
     Active Substance: ALPRAZOLAM
  25. MOTRIN [Concomitant]
     Active Substance: IBUPROFEN
  26. C-COMPLEX [Concomitant]
  27. B 6 [Concomitant]
  28. ZYRTEC [Concomitant]
     Active Substance: CETIRIZINE HYDROCHLORIDE
  29. VISINE [Concomitant]
     Active Substance: TETRAHYDROZOLINE HYDROCHLORIDE
  30. AZELASTINE HCL [Concomitant]
     Active Substance: AZELASTINE HYDROCHLORIDE
  31. LIFE EXTENSION/OMEGA 3 [Concomitant]
  32. CELEBREX [Concomitant]
     Active Substance: CELECOXIB
  33. ASPIRIN + CAFFEINE + PARACETAMOL [Suspect]
     Active Substance: ACETAMINOPHEN\ASPIRIN\CAFFEINE
     Indication: BACK PAIN
     Dosage: 2
  34. NASONEX [Concomitant]
     Active Substance: MOMETASONE FUROATE
  35. ABILIFY [Concomitant]
     Active Substance: ARIPIPRAZOLE
  36. MAGNESIUM CITRATE. [Concomitant]
     Active Substance: MAGNESIUM CITRATE
  37. JARRO DOPHILUS [Concomitant]
  38. CYCLOBENZAPRINE [Suspect]
     Active Substance: CYCLOBENZAPRINE
     Indication: BACK PAIN
     Dosage: 1 AT NIGHT, THAT DAY CYCLO 1 EVERY 4 HOURS
     Dates: start: 2010
  39. GABAPENTIN. [Concomitant]
     Active Substance: GABAPENTIN
  40. BUPROPION [Concomitant]
     Active Substance: BUPROPION
  41. COOL RITE (STOOL SOFTENER) [Concomitant]
  42. CAFFEINE. [Concomitant]
     Active Substance: CAFFEINE

REACTIONS (1)
  - Dizziness [None]

NARRATIVE: CASE EVENT DATE: 20140730
